FAERS Safety Report 10489114 (Version 2)
Quarter: 2014Q4

REPORT INFORMATION
  Report Type: Spontaneous
  Country: US (occurrence: US)
  Receive Date: 20141002
  Receipt Date: 20141208
  Transmission Date: 20150528
  Serious: Yes (Hospitalization)
  Sender: FDA-Public Use
  Company Number: US-BAYER-2014-145507

PATIENT
  Age: 20 Year
  Sex: Female
  Weight: 77.98 kg

DRUGS (3)
  1. DEPO-PROVERA [Concomitant]
     Active Substance: MEDROXYPROGESTERONE ACETATE
     Indication: CONTRACEPTION
     Dosage: UNK
     Dates: start: 201103
  2. DEPO-PROVERA [Concomitant]
     Active Substance: MEDROXYPROGESTERONE ACETATE
     Indication: CONTRACEPTION
     Dosage: UNK
     Dates: start: 201106, end: 201109
  3. MIRENA [Suspect]
     Active Substance: LEVONORGESTREL
     Indication: CONTRACEPTION
     Dosage: 20 MCG/24HR, CONT
     Route: 015
     Dates: start: 20100125, end: 20121126

REACTIONS (11)
  - Paraesthesia [None]
  - Injury [None]
  - Drug ineffective [None]
  - Hypoaesthesia [None]
  - Aggression [None]
  - Device dislocation [None]
  - Stress [None]
  - Pregnancy with contraceptive device [None]
  - Emotional distress [None]
  - Neurological complication associated with device [None]
  - Back pain [None]

NARRATIVE: CASE EVENT DATE: 201006
